FAERS Safety Report 5110140-X (Version None)
Quarter: 2006Q3

REPORT INFORMATION
  Report Type: 
  Country: None (occurrence: None)
  Receive Date: 20060921
  Receipt Date: 20060818
  Transmission Date: 20061208
  Serious: Yes (Other)
  Sender: FDA-Public Use
  Company Number: 2006UW16541

PATIENT
  Age: 60 Year
  Sex: Male
  Weight: 63.5 kg

DRUGS (6)
  1. NEXIUM [Suspect]
     Indication: GASTROOESOPHAGEAL REFLUX DISEASE
     Route: 048
     Dates: start: 20041012, end: 20060821
  2. ZETIA [Concomitant]
     Indication: HYPERLIPIDAEMIA
     Route: 048
     Dates: start: 20060807
  3. CLONAZEPAM [Concomitant]
     Indication: MOTOR DYSFUNCTION
     Route: 048
     Dates: start: 20040701
  4. WELLBUTRIN [Concomitant]
     Indication: DEPRESSION
     Route: 048
     Dates: start: 20041101, end: 20060407
  5. CRESTOR [Concomitant]
     Indication: HYPERLIPIDAEMIA
     Route: 048
     Dates: start: 20060803, end: 20060807
  6. LESCOL [Concomitant]
     Indication: HYPERLIPIDAEMIA
     Route: 048
     Dates: start: 20051201, end: 20060703

REACTIONS (3)
  - ACANTHOSIS [None]
  - HYPERKERATOSIS [None]
  - LIP ULCERATION [None]
